FAERS Safety Report 4747571-3 (Version None)
Quarter: 2005Q3

REPORT INFORMATION
  Report Type: 
  Country: None (occurrence: None)
  Receive Date: 20050818
  Receipt Date: 20040916
  Transmission Date: 20060218
  Serious: Yes (Hospitalization)
  Sender: FDA-Public Use
  Company Number: US-BRISTOL-MYERS SQUIBB COMPANY-12703856

PATIENT
  Sex: Female

DRUGS (2)
  1. TEQUIN [Suspect]
     Indication: SEPSIS
     Route: 042
  2. GENTAMICIN [Concomitant]
     Route: 042

REACTIONS (1)
  - NODAL ARRHYTHMIA [None]
